FAERS Safety Report 5664732-X (Version None)
Quarter: 2008Q1

REPORT INFORMATION
  Report Type: 
  Country: None (occurrence: None)
  Receive Date: 20080314
  Receipt Date: 20080310
  Transmission Date: 20080703
  Serious: Yes (Hospitalization)
  Sender: FDA-Public Use
  Company Number: BR-BRISTOL-MYERS SQUIBB COMPANY-14112940

PATIENT
  Age: 31 Year
  Sex: Male

DRUGS (1)
  1. ABILIFY [Suspect]
     Dosage: MAINTAINED ONLY HALF TABLET
     Route: 048

REACTIONS (4)
  - AMNESIA [None]
  - CONFUSIONAL STATE [None]
  - SYNCOPE [None]
  - WEIGHT DECREASED [None]
